FAERS Safety Report 13879002 (Version 1)
Quarter: 2017Q3

REPORT INFORMATION
  Report Type: Spontaneous
  Country: US (occurrence: US)
  Receive Date: 20170817
  Receipt Date: 20170817
  Transmission Date: 20171127
  Serious: No
  Sender: FDA-Public Use
  Company Number: US-TOLMAR, INC.-TOLG20170361

PATIENT
  Sex: Female

DRUGS (1)
  1. METRONIDAZOLE. [Suspect]
     Active Substance: METRONIDAZOLE
     Indication: ROSACEA
     Dosage: APPLY TO AFFECTED AREA
     Route: 061
     Dates: start: 20170726, end: 20170728

REACTIONS (1)
  - Rosacea [Recovering/Resolving]

NARRATIVE: CASE EVENT DATE: 20170728
